FAERS Safety Report 6579536-3 (Version None)
Quarter: 2010Q1

REPORT INFORMATION
  Report Type: 
  Country: None (occurrence: None)
  Receive Date: 20100212
  Receipt Date: 20100202
  Transmission Date: 20100710
  Serious: Yes (Hospitalization)
  Sender: FDA-Public Use
  Company Number: FR-PFIZER INC-2010014218

PATIENT
  Age: 71 Year
  Sex: Male

DRUGS (8)
  1. TAHOR [Suspect]
     Indication: HYPERCHOLESTEROLAEMIA
     Dosage: 80 MG, 1X/DAY
     Route: 048
     Dates: start: 20091001, end: 20091101
  2. CORDARONE [Concomitant]
     Indication: ATRIAL FIBRILLATION
     Dosage: 200 MG, 1X/DAY PER 5 DAYS OUT OF 7
     Route: 048
     Dates: start: 20090901
  3. SECTRAL [Concomitant]
     Indication: HYPERTENSION
     Dosage: 0.25 DF, 1X/DAY
     Route: 048
     Dates: start: 20091001
  4. TRIATEC [Concomitant]
     Indication: HYPERTENSION
     Dosage: 2.5 MG, 1X/DAY
     Route: 048
     Dates: start: 20090801
  5. IMOVANE [Concomitant]
     Indication: INSOMNIA
     Dosage: 7.5 MG, 1X/DAY
     Route: 048
     Dates: start: 20091001
  6. NEXIUM [Concomitant]
     Dosage: 20 MG, 1X/DAY
     Route: 048
     Dates: start: 20091001
  7. MESTINON [Concomitant]
     Indication: OCULAR MYASTHENIA
     Dosage: 3 DF, 1X/DAY
     Route: 048
  8. KARDEGIC [Concomitant]
     Indication: ATRIAL FIBRILLATION
     Dosage: 160 MG, 1X/DAY
     Dates: start: 20090801

REACTIONS (1)
  - HEPATITIS CHOLESTATIC [None]
